FAERS Safety Report 25306583 (Version 1)
Quarter: 2025Q2

REPORT INFORMATION
  Report Type: Spontaneous
  Country: US (occurrence: US)
  Receive Date: 20250513
  Receipt Date: 20250513
  Transmission Date: 20250717
  Serious: Yes (Hospitalization)
  Sender: SANDOZ
  Company Number: US-SANDOZ-SDZ2025US029688

PATIENT
  Age: 79 Year
  Sex: Female

DRUGS (3)
  1. ZOLEDRONIC ACID [Suspect]
     Active Substance: ZOLEDRONIC ACID
     Indication: Osteoporosis
     Route: 042
  2. ADALIMUMAB [Concomitant]
     Active Substance: ADALIMUMAB
     Indication: Rheumatoid arthritis
     Dosage: 40 MG SUBCUTANEOUS INJECTION EVERY 2 WK WITHOUT A FLARE IN OVER 10 YR
     Route: 058
  3. METHOTREXATE [Concomitant]
     Active Substance: METHOTREXATE
     Indication: Rheumatoid arthritis
     Dosage: 7.5 MG, QW
     Route: 065

REACTIONS (1)
  - Giant cell arteritis [Unknown]
